FAERS Safety Report 10155426 (Version 3)
Quarter: 2014Q3

REPORT INFORMATION
  Report Type: Spontaneous
  Country: US (occurrence: US)
  Receive Date: 20140506
  Receipt Date: 20140702
  Transmission Date: 20150326
  Serious: Yes (Hospitalization, Other)
  Sender: FDA-Public Use
  Company Number: US-UCBSA-120030

PATIENT
  Age: 42 Year
  Sex: Female
  Weight: 67.5 kg

DRUGS (3)
  1. XYZAL [Suspect]
     Active Substance: LEVOCETIRIZINE DIHYDROCHLORIDE
     Indication: SEASONAL ALLERGY
     Dosage: DOSE:5 MG
     Route: 048
     Dates: start: 2011, end: 2012
  2. COUMADIN [Concomitant]
     Active Substance: WARFARIN SODIUM
  3. ASA [Concomitant]
     Active Substance: ASPIRIN

REACTIONS (8)
  - Large intestine polyp [Unknown]
  - Hepatic cancer [Unknown]
  - Hepatic lesion [Recovered/Resolved]
  - Gastritis [Unknown]
  - Burkitt^s lymphoma [Unknown]
  - Hepatic cirrhosis [Recovering/Resolving]
  - Hiatus hernia [Unknown]
  - Constipation [Not Recovered/Not Resolved]

NARRATIVE: CASE EVENT DATE: 2012
